FAERS Safety Report 20705605 (Version 2)
Quarter: 2022Q4

REPORT INFORMATION
  Report Type: Spontaneous
  Country: US (occurrence: US)
  Receive Date: 20220413
  Receipt Date: 20221222
  Transmission Date: 20230113
  Serious: Yes (Hospitalization)
  Sender: FDA-Public Use
  Company Number: US-PFIZER INC-202101360548

PATIENT
  Age: 62 Year
  Sex: Male

DRUGS (2)
  1. RAPAMUNE [Suspect]
     Active Substance: SIROLIMUS
     Indication: Prophylaxis against transplant rejection
     Dosage: 2 MG, 1X/DAY
  2. RAPAMUNE [Suspect]
     Active Substance: SIROLIMUS
     Dosage: 2 MG, DAILY

REACTIONS (3)
  - Product dose omission issue [Unknown]
  - Disease progression [Unknown]
  - Off label use [Unknown]
